FAERS Safety Report 24609637 (Version 2)
Quarter: 2024Q4

REPORT INFORMATION
  Report Type: Spontaneous
  Country: US (occurrence: US)
  Receive Date: 20241112
  Receipt Date: 20241216
  Transmission Date: 20250115
  Serious: Yes (Other)
  Sender: PFIZER
  Company Number: US-PFIZER INC-202400299299

PATIENT
  Age: 84 Year
  Sex: Female

DRUGS (1)
  1. IBRANCE [Suspect]
     Active Substance: PALBOCICLIB
     Dosage: 100 MG TABLET 1 PO (PER ORAL) Q (ONCE A) DAY FOR 21 DAYS THEN 7 DAYS OFF
     Route: 048

REACTIONS (2)
  - Neuropathy peripheral [Unknown]
  - Asthma [Unknown]
